FAERS Safety Report 11117302 (Version 4)
Quarter: 2016Q3

REPORT INFORMATION
  Report Type: Spontaneous
  Country: JP (occurrence: JP)
  Receive Date: 20150515
  Receipt Date: 20160809
  Transmission Date: 20161109
  Serious: Yes (Hospitalization, Other)
  Sender: FDA-Public Use
  Company Number: PHJP2015JP007723

PATIENT
  Age: 53 Year
  Sex: Female
  Weight: 41 kg

DRUGS (2)
  1. GLIVEC [Suspect]
     Active Substance: IMATINIB MESYLATE
     Dosage: UNK
     Route: 065
  2. GLIVEC [Suspect]
     Active Substance: IMATINIB MESYLATE
     Indication: GASTROINTESTINAL STROMAL TUMOUR
     Dosage: 400 MG, QD
     Route: 048

REACTIONS (11)
  - Anaemia [Recovering/Resolving]
  - Tumour haemorrhage [Recovering/Resolving]
  - Blood pressure decreased [Recovering/Resolving]
  - Peritoneal haemorrhage [Recovering/Resolving]
  - Abdominal pain [Recovering/Resolving]
  - Tumour rupture [Recovered/Resolved]
  - Extravasation [Recovering/Resolving]
  - Malignant neoplasm progression [Recovering/Resolving]
  - Shock haemorrhagic [Recovering/Resolving]
  - Ascites [Recovering/Resolving]
  - Gastrointestinal stromal tumour [Recovering/Resolving]
